FAERS Safety Report 4674276-X (Version None)
Quarter: 2005Q2

REPORT INFORMATION
  Report Type: 
  Country: None (occurrence: None)
  Receive Date: 20050524
  Receipt Date: 20050510
  Transmission Date: 20051028
  Serious: Yes (Hospitalization, Other)
  Sender: FDA-Public Use
  Company Number: USA041080528

PATIENT
  Age: 75 Year
  Sex: Female
  Weight: 60 kg

DRUGS (3)
  1. FORTEO [Suspect]
     Indication: OSTEOPOROSIS
     Dosage: 20 UG DAY
     Dates: start: 20040601
  2. AVARPO (IRBESARTAN) [Concomitant]
  3. ALDACTONE [Concomitant]

REACTIONS (8)
  - AMNESIA [None]
  - ARTHRALGIA [None]
  - DIFFICULTY IN WALKING [None]
  - HYPOTENSION [None]
  - LOSS OF CONSCIOUSNESS [None]
  - NEUROPATHY [None]
  - PAIN IN EXTREMITY [None]
  - VITAMIN B12 INCREASED [None]
